FAERS Safety Report 11389557 (Version 1)
Quarter: 2015Q3

REPORT INFORMATION
  Report Type: Spontaneous
  Country: US (occurrence: US)
  Receive Date: 20150817
  Receipt Date: 20150817
  Transmission Date: 20151125
  Serious: No
  Sender: FDA-Public Use
  Company Number: US-TAKEDA-2014TUS007095

PATIENT
  Sex: Female
  Weight: 68.27 kg

DRUGS (1)
  1. ROZEREM [Suspect]
     Active Substance: RAMELTEON
     Indication: INSOMNIA
     Dosage: 8 MG, QD
     Route: 048
     Dates: start: 20140723, end: 20140724

REACTIONS (4)
  - Fall [Unknown]
  - Drug ineffective [Unknown]
  - Night sweats [Not Recovered/Not Resolved]
  - Foot fracture [Unknown]
